FAERS Safety Report 16169196 (Version 3)
Quarter: 2019Q2

REPORT INFORMATION
  Report Type: Spontaneous
  Country: TR (occurrence: TR)
  Receive Date: 20190408
  Receipt Date: 20190425
  Transmission Date: 20190711
  Serious: Yes (Hospitalization)
  Sender: FDA-Public Use
  Company Number: TR-CELGENEUS-TUR-20190311287

PATIENT
  Age: 67 Year
  Sex: Male

DRUGS (9)
  1. REVLIMID [Suspect]
     Active Substance: LENALIDOMIDE
     Indication: PLASMA CELL MYELOMA
     Route: 048
     Dates: start: 20190225, end: 20190310
  2. LACIDIPINE [Concomitant]
     Active Substance: LACIDIPINE
     Indication: HYPERTENSION
     Dosage: 4 MILLIGRAM
     Route: 048
     Dates: start: 2013
  3. VITAMIN D3 [Concomitant]
     Active Substance: CHOLECALCIFEROL
     Indication: IRON DEFICIENCY
     Dosage: 150000/10
     Route: 048
     Dates: start: 20190204
  4. RABEPRAZOLE [Concomitant]
     Active Substance: RABEPRAZOLE
     Indication: GASTRITIS PROPHYLAXIS
     Dosage: 20 MILLIGRAM
     Route: 048
     Dates: start: 20190204
  5. PARACETAMOL [Concomitant]
     Active Substance: ACETAMINOPHEN
     Indication: PAIN PROPHYLAXIS
     Route: 048
     Dates: start: 20190204
  6. ERDOSTEINE [Concomitant]
     Active Substance: ERDOSTEINE
     Indication: COUGH
     Dosage: 200 MILLIGRAM
     Route: 048
     Dates: start: 20190314
  7. FUROSEMIDE. [Concomitant]
     Active Substance: FUROSEMIDE
     Indication: PROPHYLAXIS
     Dosage: 20 MILLIGRAM
     Route: 048
     Dates: start: 20190204
  8. BORTEZOMIB. [Concomitant]
     Active Substance: BORTEZOMIB
     Indication: PLASMA CELL MYELOMA
     Route: 058
     Dates: start: 20190225, end: 20190307
  9. DEXAMETHASONE. [Suspect]
     Active Substance: DEXAMETHASONE
     Indication: PLASMA CELL MYELOMA
     Route: 065
     Dates: start: 20190225, end: 20190308

REACTIONS (1)
  - Dermatitis [Recovering/Resolving]

NARRATIVE: CASE EVENT DATE: 20190318
